FAERS Safety Report 6962537-0 (Version None)
Quarter: 2010Q3

REPORT INFORMATION
  Report Type: 
  Country: None (occurrence: None)
  Receive Date: 20100902
  Receipt Date: 20100824
  Transmission Date: 20110219
  Serious: Yes (Other)
  Sender: FDA-Public Use
  Company Number: US-SANOFI-AVENTIS-2010SA050799

PATIENT

DRUGS (1)
  1. MULTAQ [Suspect]
     Route: 065

REACTIONS (2)
  - BLOOD CREATININE INCREASED [None]
  - MULTI-ORGAN FAILURE [None]
